FAERS Safety Report 5497191-0 (Version None)
Quarter: 2007Q4

REPORT INFORMATION
  Report Type: 
  Country: None (occurrence: None)
  Receive Date: 20071025
  Receipt Date: 20060905
  Transmission Date: 20080405
  Serious: No
  Sender: FDA-Public Use
  Company Number: A0619142A

PATIENT
  Age: 55 Year
  Sex: Female

DRUGS (1)
  1. ADVAIR DISKUS 100/50 [Suspect]
     Indication: ASTHMA
     Dosage: 1PUFF TWO TIMES PER WEEK
     Route: 055
     Dates: start: 20020101

REACTIONS (3)
  - DISCOMFORT [None]
  - GENITAL RASH [None]
  - RASH [None]
